FAERS Safety Report 9548912 (Version 1)
Quarter: 2013Q3

REPORT INFORMATION
  Report Type: Spontaneous
  Country: US (occurrence: None)
  Receive Date: 20130923
  Receipt Date: 20130923
  Transmission Date: 20140515
  Serious: No
  Sender: FDA-Public Use
  Company Number: None

PATIENT
  Age: 30 Year
  Sex: Female
  Weight: 68.04 kg

DRUGS (1)
  1. SAPHRIS [Suspect]
     Indication: BIPOLAR DISORDER
     Dosage: 5 MG TWICE DAILY TAKEN UNDER THE TONGUE
     Dates: start: 20130407, end: 20130721

REACTIONS (9)
  - Heart rate increased [None]
  - Restlessness [None]
  - Suicidal ideation [None]
  - Panic attack [None]
  - Fatigue [None]
  - Depression [None]
  - Menstruation irregular [None]
  - Breast swelling [None]
  - Acne [None]
